FAERS Safety Report 11539858 (Version 1)
Quarter: 2015Q3

REPORT INFORMATION
  Report Type: Spontaneous
  Country: FR (occurrence: FR)
  Receive Date: 20150923
  Receipt Date: 20150923
  Transmission Date: 20151125
  Serious: Yes (Other)
  Sender: FDA-Public Use
  Company Number: FR-PFIZER INC-2015311306

PATIENT
  Age: 75 Year
  Sex: Female

DRUGS (3)
  1. TAZOCILLINE [Suspect]
     Active Substance: PIPERACILLIN SODIUM\TAZOBACTAM SODIUM
     Indication: LIMB INJURY
     Dosage: 4 G, 4X/DAY
     Route: 041
     Dates: start: 20150811, end: 20150813
  2. DALACINE [Suspect]
     Active Substance: CLINDAMYCIN HYDROCHLORIDE
     Indication: LIMB INJURY
     Dosage: 900 MG, 3X/DAY
     Route: 041
     Dates: start: 20150811, end: 20150813
  3. GENTAMICIN SULFATE. [Suspect]
     Active Substance: GENTAMICIN SULFATE
     Indication: LIMB INJURY
     Dosage: 500 MG, 1X/DAY
     Route: 041
     Dates: start: 20150811, end: 20150813

REACTIONS (4)
  - Erythema [Recovered/Resolved]
  - Angioedema [Recovered/Resolved]
  - Pyrexia [Recovered/Resolved]
  - Vomiting [Recovered/Resolved]

NARRATIVE: CASE EVENT DATE: 20150811
